FAERS Safety Report 26090725 (Version 1)
Quarter: 2025Q4

REPORT INFORMATION
  Report Type: Spontaneous
  Country: EU (occurrence: EU)
  Receive Date: 20251126
  Receipt Date: 20251126
  Transmission Date: 20260117
  Serious: Yes (Other)
  Sender: TEVA
  Company Number: EU-TEVA-VS-3395912

PATIENT
  Age: 52 Year

DRUGS (1)
  1. AJOVY [Suspect]
     Active Substance: FREMANEZUMAB-VFRM
     Indication: Product used for unknown indication
     Route: 065

REACTIONS (4)
  - Seizure [Not Recovered/Not Resolved]
  - Drug dose omission by device [Unknown]
  - Device occlusion [Unknown]
  - Migraine [Not Recovered/Not Resolved]
